FAERS Safety Report 4501201-4 (Version None)
Quarter: 2004Q3

REPORT INFORMATION
  Report Type: 
  Country: None (occurrence: None)
  Receive Date: 20040927
  Receipt Date: 20040813
  Transmission Date: 20050211
  Serious: No
  Sender: FDA-Public Use
  Company Number: USA040875488

PATIENT
  Sex: Female

DRUGS (1)
  1. STRATTERA [Suspect]
     Indication: ATTENTION DEFICIT/HYPERACTIVITY DISORDER
     Dosage: 40 MG IN THE MORNING
     Dates: start: 20040611

REACTIONS (9)
  - CHANGE OF BOWEL HABIT [None]
  - DECREASED APPETITE [None]
  - DRUG INEFFECTIVE [None]
  - FAECES HARD [None]
  - HEADACHE [None]
  - INSOMNIA [None]
  - MEMORY IMPAIRMENT [None]
  - PRESCRIBED OVERDOSE [None]
  - SOMNOLENCE [None]
